FAERS Safety Report 17436837 (Version 1)
Quarter: 2020Q1

REPORT INFORMATION
  Report Type: Report from Study
  Country: CA (occurrence: CA)
  Receive Date: 20200219
  Receipt Date: 20200219
  Transmission Date: 20200409
  Serious: Yes (Hospitalization)
  Sender: FDA-Public Use
  Company Number: CA-ACTELION-A-NJ2019-196981

PATIENT
  Sex: Female

DRUGS (4)
  1. UPTRAVI [Suspect]
     Active Substance: SELEXIPAG
     Dosage: 800 MCG
     Route: 048
  2. OPSUMIT [Concomitant]
     Active Substance: MACITENTAN
     Dosage: 10 MG
     Route: 048
     Dates: start: 20160301
  3. UPTRAVI [Suspect]
     Active Substance: SELEXIPAG
     Indication: PULMONARY ARTERIAL HYPERTENSION
     Dosage: 600 MCG
     Route: 048
     Dates: start: 20190909
  4. ADCIRCA [Concomitant]
     Active Substance: TADALAFIL

REACTIONS (4)
  - Diarrhoea [Recovered/Resolved]
  - Dyspnoea [Unknown]
  - Hospitalisation [Unknown]
  - Headache [Recovered/Resolved]
